FAERS Safety Report 13534535 (Version 1)
Quarter: 2017Q2

REPORT INFORMATION
  Report Type: Spontaneous
  Country: US (occurrence: US)
  Receive Date: 20170511
  Receipt Date: 20170511
  Transmission Date: 20170830
  Serious: Yes (Other)
  Sender: FDA-Public Use
  Company Number: US-CONCORDIA PHARMACEUTICALS INC.-GSH201705-002838

PATIENT
  Age: 38 Year
  Sex: Male

DRUGS (1)
  1. CLONIDINE. [Suspect]
     Active Substance: CLONIDINE

REACTIONS (9)
  - Depression [Recovering/Resolving]
  - Toxicity to various agents [Unknown]
  - Overdose [Unknown]
  - Bradycardia [Unknown]
  - Bradypnoea [Unknown]
  - Hypotension [Unknown]
  - Miosis [Unknown]
  - Metabolic acidosis [Unknown]
  - Respiratory depression [Unknown]
